FAERS Safety Report 19232909 (Version 1)
Quarter: 2021Q2

REPORT INFORMATION
  Report Type: Report from Study
  Country: None (occurrence: US)
  Receive Date: 20210507
  Receipt Date: 20210507
  Transmission Date: 20210717
  Serious: Yes (Other)
  Sender: FDA-Public Use
  Company Number: US-ABBVIE-21K-163-3890355-00

PATIENT
  Sex: Female

DRUGS (1)
  1. HUMIRA [Suspect]
     Active Substance: ADALIMUMAB
     Indication: HIDRADENITIS
     Dosage: CITRATE FREE
     Route: 058

REACTIONS (5)
  - Polycystic ovaries [Not Recovered/Not Resolved]
  - Diabetes mellitus [Unknown]
  - Pituitary tumour [Unknown]
  - Anovulatory cycle [Not Recovered/Not Resolved]
  - Dermal cyst [Unknown]
